FAERS Safety Report 17308822 (Version 1)
Quarter: 2020Q1

REPORT INFORMATION
  Report Type: Spontaneous
  Country: US (occurrence: US)
  Receive Date: 20200123
  Receipt Date: 20200123
  Transmission Date: 20200409
  Serious: No
  Sender: FDA-Public Use
  Company Number: US-COVIS PHARMA B.V.-2019COV00075

PATIENT
  Sex: Female
  Weight: 99.77 kg

DRUGS (3)
  1. TIZANIDINE. [Suspect]
     Active Substance: TIZANIDINE
  2. WARFARIN [Concomitant]
     Active Substance: WARFARIN
  3. REMODULIN [Suspect]
     Active Substance: TREPROSTINIL
     Indication: PULMONARY ARTERIAL HYPERTENSION
     Dosage: 15 NG/KG/MIN, CONTINUOUS
     Route: 042
     Dates: start: 20181109

REACTIONS (2)
  - Hypotension [Unknown]
  - Presyncope [Unknown]
